FAERS Safety Report 7434690-6 (Version None)
Quarter: 2011Q2

REPORT INFORMATION
  Report Type: 
  Country: None (occurrence: None)
  Receive Date: 20110425
  Receipt Date: 20110329
  Transmission Date: 20111010
  Serious: Yes (Other)
  Sender: FDA-Public Use
  Company Number: US-BAYER-201039720NA

PATIENT
  Age: 44 Year
  Sex: Female
  Weight: 77.098 kg

DRUGS (6)
  1. NAPROXEN [Concomitant]
     Dosage: UNK UNK, PRN
     Route: 048
  2. YASMIN [Suspect]
     Indication: PRODUCT USED FOR UNKNOWN INDICATION
     Route: 048
     Dates: start: 20040101, end: 20040201
  3. ATENOLOL [Concomitant]
     Dosage: 50 MG, QD
     Route: 048
  4. LORTAB [Concomitant]
     Dosage: UNK UNK, PRN
     Route: 048
  5. COUMADIN [Concomitant]
  6. ZANAFLEX [Concomitant]
     Dosage: UNK UNK, PRN
     Route: 048

REACTIONS (1)
  - PULMONARY EMBOLISM [None]
